FAERS Safety Report 8296190-3 (Version None)
Quarter: 2012Q2

REPORT INFORMATION
  Report Type: 
  Country: None (occurrence: None)
  Receive Date: 20120418
  Receipt Date: 20120411
  Transmission Date: 20120825
  Serious: Yes (Other)
  Sender: FDA-Public Use
  Company Number: JP-EISAI INC-E2090-02005-SPO-JP

PATIENT
  Sex: Male

DRUGS (17)
  1. ZONISAMIDE [Suspect]
     Indication: CONVULSION PROPHYLAXIS
     Route: 048
     Dates: start: 20100927, end: 20101104
  2. BETAMETHASONE [Concomitant]
     Route: 048
     Dates: start: 20101009, end: 20101014
  3. ZOLPIDEM [Concomitant]
     Indication: INSOMNIA
     Route: 048
     Dates: end: 20101104
  4. NEXAVAR [Concomitant]
     Indication: RENAL CELL CARCINOMA
     Route: 048
     Dates: start: 20100928, end: 20101020
  5. LANSOPRAZOLE [Concomitant]
     Indication: PROPHYLAXIS
     Route: 048
     Dates: start: 20101002, end: 20101104
  6. BETAMETHASONE [Concomitant]
     Indication: OEDEMA
     Route: 048
     Dates: start: 20100927, end: 20100928
  7. CELESTAMINE TAB [Concomitant]
     Route: 048
     Dates: start: 20101025, end: 20101027
  8. CODEINE PHOSPHATE HYDRATE [Concomitant]
     Indication: BRONCHITIS CHRONIC
     Route: 048
     Dates: start: 20100927, end: 20101104
  9. DEPAKENE [Suspect]
     Indication: CONVULSION PROPHYLAXIS
     Route: 048
     Dates: start: 20100927, end: 20101104
  10. MAGNESIUM OXIDE [Concomitant]
     Indication: CONSTIPATION
     Dates: end: 20101104
  11. BETAMETHASONE [Concomitant]
     Indication: PROPHYLAXIS
     Route: 048
     Dates: start: 20100929, end: 20101005
  12. OLOPATADINE HCL [Concomitant]
     Route: 048
     Dates: start: 20101015, end: 20101104
  13. FUNGIZONE [Concomitant]
     Route: 048
     Dates: start: 20101101, end: 20101104
  14. BETAMETHASONE [Concomitant]
     Route: 048
     Dates: start: 20101006, end: 20101008
  15. BETAMETHASONE [Concomitant]
     Route: 048
     Dates: start: 20101015, end: 20101103
  16. SELBEX [Concomitant]
     Indication: GASTRITIS PROPHYLAXIS
     Route: 048
     Dates: start: 20101021, end: 20101104
  17. CELESTAMINE TAB [Concomitant]
     Route: 048
     Dates: start: 20101028, end: 20101104

REACTIONS (1)
  - TOXIC EPIDERMAL NECROLYSIS [None]
